FAERS Safety Report 7335990-0 (Version None)
Quarter: 2011Q1

REPORT INFORMATION
  Report Type: 
  Country: None (occurrence: None)
  Receive Date: 20110307
  Receipt Date: 20110301
  Transmission Date: 20110831
  Serious: Yes (Death)
  Sender: FDA-Public Use
  Company Number: US-ASTRAZENECA-2011SE11153

PATIENT
  Age: 44 Year
  Sex: Female

DRUGS (18)
  1. FANAPT [Concomitant]
  2. ZYRTEC [Concomitant]
  3. CYANOCOBOLAMIN [Concomitant]
  4. ADVAIR DISKUS 100/50 [Concomitant]
  5. ZONISAMIDE [Concomitant]
  6. STRATTERA [Concomitant]
  7. PROVENTIL-HFA [Concomitant]
  8. ALPRAZOLAM [Concomitant]
  9. METFORMIN [Concomitant]
  10. FLONASE [Concomitant]
  11. SYMBICORT [Suspect]
     Route: 055
  12. CARISOPRODOL [Concomitant]
  13. IBUPROFEN [Concomitant]
  14. HYDROCODONE BITARTRATE + ACETAMINOPHEN [Concomitant]
  15. ENABLEX [Concomitant]
  16. SERTRALINE [Concomitant]
  17. MAXALT [Concomitant]
  18. COMBIVENT [Concomitant]

REACTIONS (1)
  - DEATH [None]
